FAERS Safety Report 12213003 (Version 1)
Quarter: 2016Q1

REPORT INFORMATION
  Report Type: Spontaneous
  Country: US (occurrence: None)
  Receive Date: 20160325
  Receipt Date: 20160325
  Transmission Date: 20160526
  Serious: Yes (Other)
  Sender: FDA-Public Use
  Company Number: None

PATIENT
  Age: 76 Year
  Sex: Male
  Weight: 83.92 kg

DRUGS (5)
  1. FISH OIL [Concomitant]
     Active Substance: FISH OIL
  2. AMOXICILLIN, 125 MG SANDOX [Suspect]
     Active Substance: AMOXICILLIN
     Indication: SINUSITIS
     Dosage: 20 TABLET(S) EVERY 12 HOURS TAKEN BY MOUTH
     Route: 048
     Dates: start: 20160317, end: 20160318
  3. SYNTHROID [Concomitant]
     Active Substance: LEVOTHYROXINE SODIUM
  4. VITAMIN [Concomitant]
     Active Substance: VITAMINS
  5. ASPIRIN. [Concomitant]
     Active Substance: ASPIRIN

REACTIONS (4)
  - Documented hypersensitivity to administered product [None]
  - Diarrhoea [None]
  - Nausea [None]
  - Oropharyngeal pain [None]

NARRATIVE: CASE EVENT DATE: 20160318
